FAERS Safety Report 7337500-0 (Version None)
Quarter: 2011Q1

REPORT INFORMATION
  Report Type: 
  Country: None (occurrence: None)
  Receive Date: 20110308
  Receipt Date: 20110224
  Transmission Date: 20110831
  Serious: Yes (Other)
  Sender: FDA-Public Use
  Company Number: CA-JNJFOC-20110300225

PATIENT
  Sex: Female
  Weight: 100 kg

DRUGS (20)
  1. REMICADE [Suspect]
     Route: 042
  2. HYDRA-ZIDE [Concomitant]
  3. PRAVASTATIN [Concomitant]
  4. EFFEXOR [Concomitant]
     Route: 048
  5. AVANDIA [Concomitant]
  6. METFORMIN [Concomitant]
  7. RABEPRAZOLE SODIUM [Concomitant]
  8. FUROSEMIDE [Concomitant]
  9. CILAZAPRIL [Concomitant]
  10. TEMAZEPAM [Concomitant]
  11. HYDROXYZINE [Concomitant]
  12. CORTISONE [Concomitant]
  13. ASA [Concomitant]
  14. METOCLOPRAMIDE HCL [Concomitant]
  15. DESONIDE 5% [Concomitant]
     Indication: ONYCHOMYCOSIS
  16. FERROUS SULFATE TAB [Concomitant]
  17. REMICADE [Suspect]
     Indication: RHEUMATOID ARTHRITIS
     Route: 042
  18. REMICADE [Suspect]
     Dosage: INFUSION #21
     Route: 042
  19. ATENOLOL [Concomitant]
  20. NORVASC [Concomitant]

REACTIONS (2)
  - POLYCHONDRITIS [None]
  - VULVOVAGINAL MYCOTIC INFECTION [None]
